FAERS Safety Report 9502463 (Version 2)
Quarter: 2013Q3

REPORT INFORMATION
  Report Type: Report from Study
  Country: JP (occurrence: JP)
  Receive Date: 20130906
  Receipt Date: 20130906
  Transmission Date: 20140515
  Serious: Yes (Hospitalization)
  Sender: FDA-Public Use
  Company Number: JP-BRISTOL-MYERS SQUIBB COMPANY-17249459

PATIENT
  Age: 45 Year
  Sex: Male
  Weight: 74 kg

DRUGS (2)
  1. ABILIFY TABS [Suspect]
     Indication: SCHIZOPHRENIA
     Route: 048
     Dates: start: 20111116, end: 20121225
  2. DEPAKENE [Concomitant]
     Dates: start: 20121226, end: 20121227

REACTIONS (1)
  - Schizophrenia [Recovered/Resolved]
